FAERS Safety Report 10723493 (Version 1)
Quarter: 2015Q1

REPORT INFORMATION
  Report Type: Spontaneous
  Country: US (occurrence: None)
  Receive Date: 20150114
  Receipt Date: 20150114
  Transmission Date: 20150721
  Serious: Yes (Death, Other)
  Sender: FDA-Public Use
  Company Number: FK201500035

PATIENT
  Age: 47 Year
  Sex: Male

DRUGS (5)
  1. VANCOMYCIN (MANUFACTURER UNKNOWN) (VANCOMYCIN) (VANCOMYCIN) [Suspect]
     Active Substance: VANCOMYCIN
     Indication: PRODUCT USED FOR UNKNOWN INDICATION
  2. PREDNISONE (PREDNISONE) [Suspect]
     Active Substance: PREDNISONE
     Indication: PRODUCT USED FOR UNKNOWN INDICATION
     Dosage: HOSPITAL DAY (HD)
     Route: 048
  3. TOBRAMYCIN. [Suspect]
     Active Substance: TOBRAMYCIN
     Indication: PRODUCT USED FOR UNKNOWN INDICATION
  4. AZATHIOPRINE (AZATHIOPRINE) [Suspect]
     Active Substance: AZATHIOPRINE
     Indication: PRODUCT USED FOR UNKNOWN INDICATION
  5. SOLU-MEDROL [Suspect]
     Active Substance: METHYLPREDNISOLONE SODIUM SUCCINATE
     Indication: PRODUCT USED FOR UNKNOWN INDICATION

REACTIONS (6)
  - Large intestine perforation [None]
  - Mental status changes [None]
  - Acute kidney injury [None]
  - Respiratory disorder [None]
  - Toxicity to various agents [None]
  - Delirium [None]
